FAERS Safety Report 26123685 (Version 1)
Quarter: 2025Q4

REPORT INFORMATION
  Report Type: Spontaneous
  Country: CA (occurrence: CA)
  Receive Date: 20251205
  Receipt Date: 20251205
  Transmission Date: 20260118
  Serious: Yes (Other)
  Sender: ACCORD
  Company Number: None

PATIENT
  Age: 65 Year
  Sex: Female

DRUGS (11)
  1. PACLITAXEL [Suspect]
     Active Substance: PACLITAXEL
     Indication: Product used for unknown indication
     Route: 042
  2. BACLOFEN [Concomitant]
     Active Substance: BACLOFEN
  3. CARBOPLATIN [Concomitant]
     Active Substance: CARBOPLATIN
     Dosage: SOLUTION
     Route: 042
  4. DULOXETINE HYDROCHLORIDE [Concomitant]
     Active Substance: DULOXETINE HYDROCHLORIDE
     Dosage: DELAYED RELEASE
     Route: 048
  5. MELATONIN [Concomitant]
     Active Substance: MELATONIN
  6. NIVOLUMAB [Concomitant]
     Active Substance: NIVOLUMAB
     Dosage: SOLUTION
     Route: 042
  7. OXYCODONE [Concomitant]
     Active Substance: OXYCODONE
  8. OXYCODONE [Concomitant]
     Active Substance: OXYCODONE
     Dosage: (EXTENDED- RELEASE)
  9. SENOKOT [Concomitant]
     Active Substance: SENNOSIDES
  10. VITAMIN D [Concomitant]
     Active Substance: VITAMIN D NOS
  11. YERVOY [Concomitant]
     Active Substance: IPILIMUMAB
     Dosage: SOLUTION
     Route: 042

REACTIONS (7)
  - Anxiety [Recovered/Resolved]
  - Dyspnoea [Recovered/Resolved]
  - Chest discomfort [Recovered/Resolved]
  - Dizziness [Recovered/Resolved]
  - Defaecation urgency [Recovered/Resolved]
  - Nausea [Recovered/Resolved]
  - Vomiting [Recovered/Resolved]
